FAERS Safety Report 23518178 (Version 1)
Quarter: 2024Q1

REPORT INFORMATION
  Report Type: Spontaneous
  Country: US (occurrence: US)
  Receive Date: 20240213
  Receipt Date: 20240213
  Transmission Date: 20240410
  Serious: No
  Sender: FDA-Public Use
  Company Number: US-EMERGENT BIOSOLUTIONS-24000019

PATIENT
  Age: 49 Year
  Sex: Male

DRUGS (7)
  1. CNJ-016 [Suspect]
     Active Substance: HUMAN VACCINIA VIRUS IMMUNE GLOBULIN
     Indication: Monkeypox
     Dosage: ONE DOSE
     Route: 065
  2. CNJ-016 [Suspect]
     Active Substance: HUMAN VACCINIA VIRUS IMMUNE GLOBULIN
     Dosage: SECOND DOSE
     Route: 065
  3. BICTEGRAVIR [Concomitant]
     Active Substance: BICTEGRAVIR
     Indication: HIV infection
     Dosage: UNK
     Route: 065
  4. TECOVIRIMAT [Concomitant]
     Active Substance: TECOVIRIMAT
     Indication: Monkeypox
     Dosage: FIRST CYCLE
     Route: 065
  5. TECOVIRIMAT [Concomitant]
     Active Substance: TECOVIRIMAT
     Dosage: SECOND CYCLE
     Route: 065
  6. CIDOFOVIR [Concomitant]
     Active Substance: CIDOFOVIR
     Indication: Monkeypox
     Dosage: FIRST DOSE
     Route: 065
  7. CIDOFOVIR [Concomitant]
     Active Substance: CIDOFOVIR
     Dosage: SECOND DOSE
     Route: 065

REACTIONS (1)
  - Off label use [Unknown]
